FAERS Safety Report 11525366 (Version 5)
Quarter: 2019Q1

REPORT INFORMATION
  Report Type: Spontaneous
  Country: US (occurrence: US)
  Receive Date: 20150918
  Receipt Date: 20190221
  Transmission Date: 20190417
  Serious: Yes (Hospitalization, Other)
  Sender: FDA-Public Use
  Company Number: US-DSJP-DSU-2015-119457

PATIENT

DRUGS (4)
  1. BENICAR [Suspect]
     Active Substance: OLMESARTAN MEDOXOMIL
     Dosage: 40 MG, QD
     Route: 048
     Dates: start: 200911, end: 201106
  2. BENICAR HCT [Suspect]
     Active Substance: HYDROCHLOROTHIAZIDE\OLMESARTAN MEDOXOMIL
     Indication: HYPERTENSION
     Dosage: 40/12.5 MG, QD
     Route: 048
     Dates: start: 20100527, end: 201106
  3. BENICAR [Suspect]
     Active Substance: OLMESARTAN MEDOXOMIL
     Indication: HYPERTENSION
     Dosage: 40 MG, UNK
     Dates: start: 200704, end: 200802
  4. BENICAR [Suspect]
     Active Substance: OLMESARTAN MEDOXOMIL
     Dosage: 40 MG, DAILY

REACTIONS (14)
  - Gastrointestinal surgery [Unknown]
  - Haematuria [Unknown]
  - Coeliac disease [Not Recovered/Not Resolved]
  - Cholecystectomy [Unknown]
  - Large intestine polyp [Unknown]
  - Diverticulum intestinal [Unknown]
  - Hiatus hernia [Unknown]
  - Colectomy [Unknown]
  - Duodenal ulcer [Unknown]
  - Sprue-like enteropathy [Not Recovered/Not Resolved]
  - Haemorrhoids [Unknown]
  - Pain [Unknown]
  - Renal cyst [Unknown]
  - Oesophageal disorder [Unknown]

NARRATIVE: CASE EVENT DATE: 2007
